FAERS Safety Report 5875746-9 (Version None)
Quarter: 2008Q3

REPORT INFORMATION
  Report Type: 
  Country: None (occurrence: None)
  Receive Date: 20080905
  Receipt Date: 20080820
  Transmission Date: 20090109
  Serious: Yes (Other)
  Sender: FDA-Public Use
  Company Number: 8036460

PATIENT
  Age: 81 Year
  Sex: Female
  Weight: 75 kg

DRUGS (2)
  1. KEPPRA [Suspect]
     Indication: CONVULSION
     Dosage: 1000 MG /D PO
     Route: 048
     Dates: start: 20080501, end: 20080718
  2. KEPPRA [Suspect]
     Indication: POST PROCEDURAL COMPLICATION
     Dosage: 1000 MG /D PO
     Route: 048
     Dates: start: 20080501, end: 20080718

REACTIONS (2)
  - APHTHOUS STOMATITIS [None]
  - STEVENS-JOHNSON SYNDROME [None]
